FAERS Safety Report 6809331-9 (Version None)
Quarter: 2010Q2

REPORT INFORMATION
  Report Type: 
  Country: None (occurrence: None)
  Receive Date: 20100630
  Receipt Date: 20100618
  Transmission Date: 20101027
  Serious: Yes (Other)
  Sender: FDA-Public Use
  Company Number: US-ELI_LILLY_AND_COMPANY-US201003007693

PATIENT
  Age: 12 Year
  Sex: Male
  Weight: 47.619 kg

DRUGS (8)
  1. STRATTERA [Suspect]
     Indication: ATTENTION DEFICIT/HYPERACTIVITY DISORDER
     Dosage: 40 MG, UNK
  2. FELBATOL [Concomitant]
     Indication: CONVULSION
  3. MINOCYCLINE [Concomitant]
     Indication: PAIN
  4. CLONAZEPAM [Concomitant]
     Indication: ANXIETY
     Dosage: 0.25 MG, UNK
  5. LUPRON DEPOT [Concomitant]
     Indication: PRECOCIOUS PUBERTY
  6. MELATONIN [Concomitant]
     Indication: INSOMNIA
  7. MIRALAX [Concomitant]
     Indication: CONSTIPATION
  8. VYVANSE [Concomitant]
     Indication: ATTENTION DEFICIT/HYPERACTIVITY DISORDER

REACTIONS (3)
  - ALANINE AMINOTRANSFERASE INCREASED [None]
  - ASPARTATE AMINOTRANSFERASE INCREASED [None]
  - GAMMA-GLUTAMYLTRANSFERASE INCREASED [None]
